FAERS Safety Report 4723740-3 (Version None)
Quarter: 2005Q3

REPORT INFORMATION
  Report Type: 
  Country: None (occurrence: None)
  Receive Date: 20050725
  Receipt Date: 20050704
  Transmission Date: 20060218
  Serious: Yes (Life-Threatening, Hospitalization, Disabling)
  Sender: FDA-Public Use
  Company Number: JP-BRISTOL-MYERS SQUIBB COMPANY-13023759

PATIENT
  Age: 50 Year
  Sex: Male

DRUGS (8)
  1. TAXOL [Suspect]
     Indication: NON-SMALL CELL LUNG CANCER
     Route: 041
     Dates: start: 20050622, end: 20050622
  2. PARAPLATIN [Suspect]
     Indication: NON-SMALL CELL LUNG CANCER
     Route: 041
     Dates: start: 20050622, end: 20050622
  3. GASTER [Concomitant]
     Route: 041
     Dates: start: 20050622, end: 20050622
  4. DECADRON [Concomitant]
     Route: 041
     Dates: start: 20050622, end: 20050622
  5. KYTRIL [Concomitant]
     Route: 041
     Dates: start: 20050622, end: 20050622
  6. RESTAMIN [Concomitant]
     Route: 048
     Dates: start: 20050622, end: 20050622
  7. CODEINE PHOSPHATE [Concomitant]
     Route: 048
     Dates: start: 20050608
  8. MAGNESIUM OXIDE [Concomitant]
     Route: 048
     Dates: start: 20050608

REACTIONS (2)
  - DYSARTHRIA [None]
  - HEMIPLEGIA [None]
